FAERS Safety Report 8166844-8 (Version None)
Quarter: 2012Q1

REPORT INFORMATION
  Report Type: 
  Country: None (occurrence: None)
  Receive Date: 20120227
  Receipt Date: 20120217
  Transmission Date: 20120608
  Serious: Yes (Other)
  Sender: FDA-Public Use
  Company Number: US-BAYER-2012-016664

PATIENT
  Age: 62 Year
  Sex: Male
  Weight: 86 kg

DRUGS (5)
  1. ONE A DAY VITACRAVES PLUS IMMUNITY SUPPORT GUMMIES [Suspect]
     Dosage: 2 DF, QD
     Route: 048
     Dates: start: 20120211, end: 20120213
  2. PRAVASTATIN [Concomitant]
  3. AMLODIPINE [Concomitant]
  4. ACETYLSALICYLIC ACID SRT [Suspect]
  5. TOPROL-XL [Concomitant]

REACTIONS (1)
  - HAEMATOCHEZIA [None]
